FAERS Safety Report 12147730 (Version 2)
Quarter: 2016Q1

REPORT INFORMATION
  Report Type: Spontaneous
  Country: BR (occurrence: BR)
  Receive Date: 20160304
  Receipt Date: 20160316
  Transmission Date: 20160526
  Serious: Yes (Other)
  Sender: FDA-Public Use
  Company Number: BR-SA-2016SA039323

PATIENT
  Sex: Male
  Weight: 85 kg

DRUGS (3)
  1. SOLOSTAR [Concomitant]
     Active Substance: DEVICE
     Indication: BLOOD GLUCOSE ABNORMAL
     Dates: start: 2014
  2. DRUSOLOL [Concomitant]
     Indication: DIABETIC RETINOPATHY
     Dosage: IN THE EYES
     Dates: start: 2014
  3. LANTUS SOLOSTAR [Suspect]
     Active Substance: INSULIN GLARGINE
     Indication: BLOOD GLUCOSE ABNORMAL
     Dosage: ROUTE:APPLIED IN THE ABDOMEN.
     Dates: start: 2014

REACTIONS (2)
  - Surgery [Unknown]
  - Visual impairment [Not Recovered/Not Resolved]
